FAERS Safety Report 8133079-4 (Version None)
Quarter: 2012Q1

REPORT INFORMATION
  Report Type: 
  Country: None (occurrence: None)
  Receive Date: 20120213
  Receipt Date: 20120207
  Transmission Date: 20120608
  Serious: Yes (Hospitalization)
  Sender: FDA-Public Use
  Company Number: PHHY2011AR111768

PATIENT
  Age: 22 Year
  Sex: Female

DRUGS (2)
  1. GILENYA [Suspect]
     Dosage: UNK UKN, UNK
     Dates: start: 20111227, end: 20120124
  2. GILENYA [Suspect]
     Indication: RELAPSING-REMITTING MULTIPLE SCLEROSIS
     Dosage: UNK UKN, UNK

REACTIONS (5)
  - GRAND MAL CONVULSION [None]
  - MULTIPLE SCLEROSIS RELAPSE [None]
  - BRAIN OEDEMA [None]
  - MENINGOENCEPHALITIS HERPETIC [None]
  - OPHTHALMOPLEGIA [None]
